FAERS Safety Report 9291432 (Version 1)
Quarter: 2013Q2

REPORT INFORMATION
  Report Type: Spontaneous
  Country: BR (occurrence: BR)
  Receive Date: 20130515
  Receipt Date: 20130515
  Transmission Date: 20140414
  Serious: Yes (Death, Hospitalization)
  Sender: FDA-Public Use
  Company Number: BR-009507513-1305BRA008643

PATIENT
  Age: 85 Year
  Sex: Male
  Weight: 50 kg

DRUGS (4)
  1. DECA-DURABOLIN [Suspect]
     Indication: MOOD ALTERED
     Dosage: 25 MG, ONCE
     Route: 030
     Dates: start: 20130508, end: 20130508
  2. DIETHYLSTILBESTROL [Concomitant]
     Indication: HORMONE THERAPY
     Dosage: 1 DF, TID
     Route: 065
     Dates: start: 201303
  3. MINERALS (UNSPECIFIED) (+) VITAMINS (UNSPECIFIED) [Concomitant]
     Indication: VITAMIN SUPPLEMENTATION
     Dosage: 1 DF, QD
     Route: 065
     Dates: start: 201210
  4. IRON (UNSPECIFIED) [Concomitant]
     Indication: MINERAL SUPPLEMENTATION
     Dosage: 1 DF, QD
     Route: 065
     Dates: start: 201210

REACTIONS (7)
  - Death [Fatal]
  - Metastatic pain [Fatal]
  - Pyrexia [Fatal]
  - Lung infiltration [Fatal]
  - Delirium [Fatal]
  - Abnormal behaviour [Fatal]
  - Off label use [Unknown]
